FAERS Safety Report 4308617-X (Version None)
Quarter: 2004Q1

REPORT INFORMATION
  Report Type: 
  Country: None (occurrence: None)
  Receive Date: 20040227
  Receipt Date: 20040211
  Transmission Date: 20041129
  Serious: Yes (Other)
  Sender: FDA-Public Use
  Company Number: 204584

PATIENT
  Age: 46 Year
  Sex: Female

DRUGS (6)
  1. HERCEPTIN [Suspect]
     Indication: BREAST CANCER
     Dosage: 270 MG, INTRAVENOUS
     Route: 042
     Dates: start: 20030915, end: 20040219
  2. FLUOROURACIL [Suspect]
     Indication: BREAST CANCER
     Dosage: 1100 MG, INTRAVENOUS
     Route: 042
     Dates: start: 20030915
  3. KYTRIL [Concomitant]
  4. NEUPOGEN [Concomitant]
  5. LEVAQUIN [Concomitant]
  6. CARBPLASTIN [Suspect]
     Indication: BREAST CANCER
     Dosage: 215 MG UNK, UNK
     Dates: start: 20030915

REACTIONS (1)
  - HAEMOLYTIC ANAEMIA [None]
